FAERS Safety Report 16360132 (Version 1)
Quarter: 2019Q2

REPORT INFORMATION
  Report Type: Spontaneous
  Country: EG (occurrence: EG)
  Receive Date: 20190528
  Receipt Date: 20190528
  Transmission Date: 20190711
  Serious: Yes (Other)
  Sender: FDA-Public Use
  Company Number: EG-HIKMA PHARMACEUTICALS USA INC.-EG-H14001-19-03479

PATIENT
  Age: 48 Year
  Sex: Male

DRUGS (2)
  1. CARBOTINOL [Suspect]
     Active Substance: CARBOPLATIN
     Indication: PENILE CANCER
     Route: 041
     Dates: start: 20190108
  2. GEMZAR [Suspect]
     Active Substance: GEMCITABINE HYDROCHLORIDE
     Indication: PENILE CANCER
     Route: 041
     Dates: start: 20190108

REACTIONS (2)
  - Aspartate aminotransferase increased [Recovered/Resolved]
  - Alanine aminotransferase increased [Recovered/Resolved]

NARRATIVE: CASE EVENT DATE: 2019
